FAERS Safety Report 5152536-6 (Version None)
Quarter: 2006Q4

REPORT INFORMATION
  Report Type: 
  Country: None (occurrence: None)
  Receive Date: 20061109
  Receipt Date: 20061026
  Transmission Date: 20070319
  Serious: Yes (Life-Threatening, Hospitalization, Disabling, Other)
  Sender: FDA-Public Use
  Company Number: 2006SP005014

PATIENT
  Age: 76 Year
  Sex: Male

DRUGS (10)
  1. FLUTAMIDE [Suspect]
     Indication: DRUG USE FOR UNKNOWN INDICATION
     Dosage: 250 MG; PO
     Route: 048
     Dates: start: 20060707
  2. AMLODIPINE (CON) [Concomitant]
  3. ASPIRIN (CON) [Concomitant]
  4. CO-DANTHRUSATE (CON) [Concomitant]
  5. DIPYRIDAMOLE (CON) [Concomitant]
  6. LANSOPRAZOLE (CON) [Concomitant]
  7. PARACETAMOL (CON) [Concomitant]
  8. SIMVASTATIN (CON) [Concomitant]
  9. TRAMADOL (CON) [Concomitant]
  10. RISPERIDONE (CON) [Concomitant]

REACTIONS (2)
  - BLOOD SODIUM DECREASED [None]
  - CONFUSIONAL STATE [None]
